FAERS Safety Report 4319282-X (Version None)
Quarter: 2004Q1

REPORT INFORMATION
  Report Type: 
  Country: None (occurrence: None)
  Receive Date: 20040316
  Receipt Date: 20040303
  Transmission Date: 20041129
  Serious: No
  Sender: FDA-Public Use
  Company Number: 2004AP01417

PATIENT
  Age: 15 Year
  Sex: Male

DRUGS (2)
  1. XYLOCAINE [Suspect]
     Dates: start: 20020805, end: 20020819
  2. ANPEC [Concomitant]

REACTIONS (3)
  - ANAL SPHINCTER ATONY [None]
  - MEDICATION ERROR [None]
  - PAIN [None]
